FAERS Safety Report 4453566-X (Version None)
Quarter: 2004Q3

REPORT INFORMATION
  Report Type: 
  Country: None (occurrence: None)
  Receive Date: 20040920
  Receipt Date: 20040907
  Transmission Date: 20050211
  Serious: Yes (Hospitalization)
  Sender: FDA-Public Use
  Company Number: BE-JNJFOC-20040902379

PATIENT
  Age: 50 Year
  Sex: Male

DRUGS (8)
  1. PROPULSID [Suspect]
     Route: 049
     Dates: start: 20040722
  2. PROGRAF [Concomitant]
     Indication: HEART TRANSPLANT
     Route: 049
  3. IMURAN [Concomitant]
     Indication: HEART TRANSPLANT
     Route: 049
  4. ZANTAC [Concomitant]
     Indication: HEART TRANSPLANT
     Route: 049
  5. CITALOPAM [Concomitant]
     Indication: HEART TRANSPLANT
     Route: 049
  6. MOXON [Concomitant]
     Indication: HEART TRANSPLANT
     Route: 049
  7. KREDEX [Concomitant]
     Indication: HEART TRANSPLANT
     Route: 049
  8. PRAVASINE [Concomitant]
     Indication: HEART TRANSPLANT
     Route: 049

REACTIONS (1)
  - RENAL FAILURE ACUTE [None]
